FAERS Safety Report 6752606-2 (Version None)
Quarter: 2010Q2

REPORT INFORMATION
  Report Type: 
  Country: None (occurrence: None)
  Receive Date: 20100602
  Receipt Date: 20100524
  Transmission Date: 20101027
  Serious: Yes (Hospitalization, Other)
  Sender: FDA-Public Use
  Company Number: US-ABBOTT-10P-163-0647109-00

PATIENT
  Sex: Male
  Weight: 70.37 kg

DRUGS (3)
  1. HUMIRA [Suspect]
     Indication: CROHN'S DISEASE
     Route: 058
     Dates: start: 20091001, end: 20100507
  2. HUMIRA [Suspect]
     Route: 058
     Dates: start: 20100507
  3. UNKNOWN OTHER MEDICATIONS [Concomitant]
     Indication: CROHN'S DISEASE

REACTIONS (4)
  - ABSCESS [None]
  - ABSCESS INTESTINAL [None]
  - FISTULA [None]
  - GASTROINTESTINAL INFLAMMATION [None]
